FAERS Safety Report 8682670 (Version 2)
Quarter: 2014Q3

REPORT INFORMATION
  Report Type: Spontaneous
  Country: GB (occurrence: None)
  Receive Date: 20120710
  Receipt Date: 20140716
  Transmission Date: 20150326
  Serious: Yes (Death)
  Sender: FDA-Public Use
  Company Number: 1339633

PATIENT
  Age: 74 Year
  Sex: Female

DRUGS (3)
  1. FLUDARABINE PHOSPHATE. [Suspect]
     Active Substance: FLUDARABINE PHOSPHATE
     Indication: CHRONIC MYELOID LEUKAEMIA
     Dosage: CYCLICAL
     Dates: start: 20100304, end: 20101110
  2. CHLORAMBUCIL [Concomitant]
     Active Substance: CHLORAMBUCIL
  3. CYCLOPHOSPHAMIDE. [Suspect]
     Active Substance: CYCLOPHOSPHAMIDE
     Indication: CHRONIC LYMPHOCYTIC LEUKAEMIA
     Dosage: CYCLICAL
     Dates: start: 20100304, end: 20101110

REACTIONS (6)
  - Ultrasound abdomen abnormal [None]
  - Haemoglobin decreased [None]
  - Histiocytosis haematophagic [None]
  - Blood triglycerides increased [None]
  - Neutropenic sepsis [None]
  - Splenomegaly [None]

NARRATIVE: CASE EVENT DATE: 20110506
